FAERS Safety Report 13828599 (Version 1)
Quarter: 2017Q3

REPORT INFORMATION
  Report Type: Spontaneous
  Country: US (occurrence: US)
  Receive Date: 20170802
  Receipt Date: 20170802
  Transmission Date: 20171127
  Serious: Yes (Hospitalization, Other)
  Sender: FDA-Public Use
  Company Number: None

PATIENT
  Age: 68 Year
  Sex: Female

DRUGS (18)
  1. LIPITOR [Concomitant]
     Active Substance: ATORVASTATIN CALCIUM
  2. PRINIVIL [Concomitant]
     Active Substance: LISINOPRIL
  3. PREDNISONE. [Concomitant]
     Active Substance: PREDNISONE
  4. AMBIEN [Concomitant]
     Active Substance: ZOLPIDEM TARTRATE
  5. VITAMIN D [Concomitant]
     Active Substance: CHOLECALCIFEROL
  6. NORVASC [Concomitant]
     Active Substance: AMLODIPINE BESYLATE
  7. LOPRESSOR [Concomitant]
     Active Substance: METOPROLOL TARTRATE
  8. MESTINON [Concomitant]
     Active Substance: PYRIDOSTIGMINE BROMIDE
  9. PEPCID [Concomitant]
     Active Substance: FAMOTIDINE
  10. ULTRAM [Concomitant]
     Active Substance: TRAMADOL HYDROCHLORIDE
  11. IMURAN [Concomitant]
     Active Substance: AZATHIOPRINE
  12. FENOFIBRATE. [Concomitant]
     Active Substance: FENOFIBRATE
  13. WELLBUTRIN [Concomitant]
     Active Substance: BUPROPION HYDROCHLORIDE
  14. VOLTAREN [Concomitant]
     Active Substance: DICLOFENAC SODIUM
  15. LEVOTHYROXINE. [Concomitant]
     Active Substance: LEVOTHYROXINE
  16. 3,4 DIAMINOPYRIDINE 10 MG TAB [Suspect]
     Active Substance: AMIFAMPRIDINE
     Indication: MYASTHENIC SYNDROME
     Dosage: 5 MG (1/2 10 MG TAB)
     Route: 048
     Dates: start: 20170502
  17. NEURONTIN [Concomitant]
     Active Substance: GABAPENTIN
  18. IRON [Concomitant]
     Active Substance: IRON

REACTIONS (2)
  - Oesophageal achalasia [None]
  - Pneumonia aspiration [None]

NARRATIVE: CASE EVENT DATE: 20170718
